FAERS Safety Report 4711102-4 (Version None)
Quarter: 2005Q3

REPORT INFORMATION
  Report Type: 
  Country: None (occurrence: None)
  Receive Date: 20050708
  Receipt Date: 20050630
  Transmission Date: 20060218
  Serious: Yes (Hospitalization, Other)
  Sender: FDA-Public Use
  Company Number: 2005-06-2348

PATIENT
  Age: 80 Year
  Sex: Male

DRUGS (4)
  1. FLUTAMIDE [Suspect]
     Indication: PROSTATE CANCER
     Dosage: 375 MG ORAL
     Route: 048
     Dates: start: 20050403, end: 20050608
  2. ENALAPRIL MALEATE [Concomitant]
  3. CANDESARTAN CILEXETIL [Concomitant]
  4. LEUPROLIDE ACETATE [Concomitant]

REACTIONS (3)
  - LIVER DISORDER [None]
  - METASTASES TO LIVER [None]
  - METASTATIC GASTRIC CANCER [None]
